FAERS Safety Report 19367215 (Version 1)
Quarter: 2021Q2

REPORT INFORMATION
  Report Type: Spontaneous
  Country: US (occurrence: US)
  Receive Date: 20210602
  Receipt Date: 20210602
  Transmission Date: 20210717
  Serious: No
  Sender: FDA-Public Use
  Company Number: US-BEH-2021132284

PATIENT
  Age: 46 Year
  Sex: Female

DRUGS (2)
  1. HIZENTRA [Suspect]
     Active Substance: HUMAN IMMUNOGLOBULIN G
     Indication: IMMUNODEFICIENCY COMMON VARIABLE
     Dosage: 18 GRAM, QOW
     Route: 058
     Dates: start: 20200915
  2. HIZENTRA [Suspect]
     Active Substance: HUMAN IMMUNOGLOBULIN G
     Dosage: 18 GRAM, QOW
     Route: 058
     Dates: start: 20200915

REACTIONS (4)
  - No adverse event [Unknown]
  - Decreased appetite [Unknown]
  - Joint swelling [Unknown]
  - Product administration error [Unknown]

NARRATIVE: CASE EVENT DATE: 202105
